FAERS Safety Report 26054055 (Version 1)
Quarter: 2025Q4

REPORT INFORMATION
  Report Type: Spontaneous
  Country: CN (occurrence: CN)
  Receive Date: 20251117
  Receipt Date: 20251117
  Transmission Date: 20260117
  Serious: Yes (Other)
  Sender: PFIZER
  Company Number: CN-PFIZER INC-PV202500133338

PATIENT
  Age: 67 Year
  Sex: Male
  Weight: 45 kg

DRUGS (2)
  1. VFEND [Suspect]
     Active Substance: VORICONAZOLE
     Indication: Bronchopulmonary aspergillosis
     Dosage: 0.2 G, 2X/DAY
     Route: 041
     Dates: start: 20250212, end: 20250214
  2. VFEND [Suspect]
     Active Substance: VORICONAZOLE
     Indication: Bronchopulmonary aspergillosis
     Dosage: 300 MG, 2X/DAY
     Route: 048
     Dates: start: 20250211, end: 20250212

REACTIONS (4)
  - Visual impairment [Recovered/Resolved]
  - Hallucination [Recovering/Resolving]
  - Mania [Recovering/Resolving]
  - Mental disorder [Recovered/Resolved]

NARRATIVE: CASE EVENT DATE: 20250214
